FAERS Safety Report 6826540-3 (Version None)
Quarter: 2010Q3

REPORT INFORMATION
  Report Type: 
  Country: None (occurrence: None)
  Receive Date: 20100709
  Receipt Date: 20100701
  Transmission Date: 20110219
  Serious: Yes (Hospitalization)
  Sender: FDA-Public Use
  Company Number: PHHO2010FR09962

PATIENT
  Sex: Female
  Weight: 47 kg

DRUGS (9)
  1. CERTICAN [Suspect]
     Indication: RENAL TRANSPLANT
     Dosage: 4 MG, QD
     Route: 048
     Dates: start: 20100516
  2. CELLCEPT [Suspect]
     Indication: RENAL TRANSPLANT
     Dosage: 2 G, QD
     Dates: start: 20100511
  3. BACTRIM [Suspect]
     Dosage: UNK
     Dates: start: 20100521, end: 20100625
  4. ROVALCYTE [Suspect]
     Dosage: UNK
     Dates: start: 20100521, end: 20100625
  5. CORTICOSTEROIDS [Concomitant]
     Indication: RENAL TRANSPLANT
     Dosage: 17.5 MG, QD
     Route: 048
     Dates: start: 20100511
  6. AMLOR [Concomitant]
     Dosage: UNK
     Dates: start: 20100517, end: 20100630
  7. PRAVASTATIN SODIUM [Concomitant]
     Dosage: UNK
     Dates: start: 20100522
  8. PHOSPHONEUROS [Concomitant]
     Dosage: UNK
     Dates: start: 20100526, end: 20100620
  9. HUMALOG [Concomitant]
     Dosage: UNK
     Dates: start: 20100601, end: 20100628

REACTIONS (2)
  - FEBRILE NEUTROPENIA [None]
  - LEUKOPENIA [None]
